FAERS Safety Report 9420558 (Version 1)
Quarter: 2013Q3

REPORT INFORMATION
  Report Type: Spontaneous
  Country: TR (occurrence: None)
  Receive Date: 20130723
  Receipt Date: 20130723
  Transmission Date: 20140515
  Serious: Yes (Congenital Anomaly, Other)
  Sender: FDA-Public Use
  Company Number: CMB-00117

PATIENT
  Sex: 0

DRUGS (1)
  1. DICLOFENAC [Suspect]
     Indication: HEADACHE

REACTIONS (2)
  - Foetal exposure during pregnancy [None]
  - Caesarean section [None]
